FAERS Safety Report 15813395 (Version 1)
Quarter: 2019Q1

REPORT INFORMATION
  Report Type: Spontaneous
  Country: US (occurrence: US)
  Receive Date: 20190111
  Receipt Date: 20190111
  Transmission Date: 20190417
  Serious: No
  Sender: FDA-Public Use
  Company Number: US-BEH-2019098362

PATIENT
  Sex: Male

DRUGS (2)
  1. PRIVIGEN [Suspect]
     Active Substance: HUMAN IMMUNOGLOBULIN G
     Dosage: 35 G, TOT
     Route: 042
     Dates: start: 20181215, end: 20181215
  2. PRIVIGEN [Suspect]
     Active Substance: HUMAN IMMUNOGLOBULIN G
     Indication: HYPOGAMMAGLOBULINAEMIA
     Dosage: 35 G, QMT (Q4W)
     Route: 042
     Dates: start: 20181213

REACTIONS (3)
  - Muscular weakness [Unknown]
  - Pain [Unknown]
  - Migraine [Unknown]
